FAERS Safety Report 6537123-7 (Version None)
Quarter: 2010Q1

REPORT INFORMATION
  Report Type: 
  Country: None (occurrence: None)
  Receive Date: 20100114
  Receipt Date: 20100108
  Transmission Date: 20100710
  Serious: Yes (Hospitalization)
  Sender: FDA-Public Use
  Company Number: US-ELI_LILLY_AND_COMPANY-US201001001639

PATIENT
  Sex: Male

DRUGS (14)
  1. HUMULIN N [Suspect]
     Indication: DIABETES MELLITUS
     Dosage: 38 U, EACH MORNING
     Dates: start: 20050101
  2. HUMULIN N [Suspect]
     Dosage: 18 U, DAILY (1/D)
     Dates: start: 20050101
  3. NEPHROCAPS [Concomitant]
  4. PLAVIX [Concomitant]
  5. SYNTHROID [Concomitant]
  6. ISORBIDE [Concomitant]
  7. DIGOXIN [Concomitant]
  8. HYDROXYZINE [Concomitant]
  9. SPIRONOLACTONE [Concomitant]
  10. CARVEDILOL [Concomitant]
  11. FOLIC ACID [Concomitant]
  12. ZEMPLAR [Concomitant]
  13. FUROSEMIDE [Concomitant]
  14. COLCHICINE [Concomitant]

REACTIONS (8)
  - BLOOD CREATININE ABNORMAL [None]
  - BLOOD GLUCOSE INCREASED [None]
  - BLOOD UREA ABNORMAL [None]
  - CARDIAC FAILURE CONGESTIVE [None]
  - CARDIAC VALVE DISEASE [None]
  - DRUG DOSE OMISSION [None]
  - DYSPNOEA [None]
  - RENAL DISORDER [None]
